FAERS Safety Report 10680276 (Version 2)
Quarter: 2015Q1

REPORT INFORMATION
  Report Type: Spontaneous
  Country: US (occurrence: US)
  Receive Date: 20141229
  Receipt Date: 20150219
  Transmission Date: 20150720
  Serious: Yes (Other)
  Sender: FDA-Public Use
  Company Number: US-SA-2013SA126312

PATIENT
  Age: 81 Year

DRUGS (1)
  1. PLAVIX [Suspect]
     Active Substance: CLOPIDOGREL BISULFATE
     Indication: STENT PLACEMENT
     Route: 065
     Dates: start: 20040601, end: 20111230

REACTIONS (6)
  - Cholecystectomy [Unknown]
  - Haemorrhage [Unknown]
  - Abdominal pain upper [Unknown]
  - Thrombotic thrombocytopenic purpura [Unknown]
  - Epistaxis [Unknown]
  - Haematuria [Unknown]

NARRATIVE: CASE EVENT DATE: 20110901
